FAERS Safety Report 17292169 (Version 3)
Quarter: 2020Q1

REPORT INFORMATION
  Report Type: Spontaneous
  Country: JP (occurrence: JP)
  Receive Date: 20200121
  Receipt Date: 20200330
  Transmission Date: 20200409
  Serious: Yes (Death, Hospitalization, Other)
  Sender: FDA-Public Use
  Company Number: JP-BRISTOL-MYERS SQUIBB COMPANY-BMS-2020-003975

PATIENT
  Age: 67 Year
  Sex: Male
  Weight: 67 kg

DRUGS (1)
  1. OPDIVO [Suspect]
     Active Substance: NIVOLUMAB
     Indication: GASTRIC CANCER
     Dosage: 240 MILLIGRAM
     Route: 041
     Dates: start: 20190705

REACTIONS (8)
  - Pneumonia aspiration [Fatal]
  - Pneumothorax [Unknown]
  - Candida infection [Unknown]
  - Malignant neoplasm progression [Fatal]
  - Encephalopathy [Unknown]
  - Thrombophlebitis migrans [Unknown]
  - Dysphagia [Fatal]
  - Cranial nerve disorder [Unknown]

NARRATIVE: CASE EVENT DATE: 201910
